FAERS Safety Report 8126177-2 (Version None)
Quarter: 2012Q1

REPORT INFORMATION
  Report Type: 
  Country: None (occurrence: None)
  Receive Date: 20120209
  Receipt Date: 20120206
  Transmission Date: 20120608
  Serious: Yes (Death)
  Sender: FDA-Public Use
  Company Number: PHHY2011ZA95267

PATIENT
  Sex: Male

DRUGS (3)
  1. GLEEVEC [Suspect]
     Dosage: UNK
  2. GLEEVEC [Suspect]
     Indication: CHRONIC MYELOID LEUKAEMIA
     Dosage: 400 MG
  3. GLEEVEC [Suspect]
     Dosage: 400 MG

REACTIONS (3)
  - THERAPEUTIC RESPONSE DECREASED [None]
  - DRUG TOLERANCE DECREASED [None]
  - PNEUMONIA [None]
